FAERS Safety Report 7325136-7 (Version None)
Quarter: 2011Q1

REPORT INFORMATION
  Report Type: 
  Country: None (occurrence: None)
  Receive Date: 20110302
  Receipt Date: 20110223
  Transmission Date: 20110831
  Serious: Yes (Hospitalization, Other)
  Sender: FDA-Public Use
  Company Number: US-ASTRAZENECA-2007UW02010

PATIENT
  Age: 15312 Day
  Sex: Female
  Weight: 86.2 kg

DRUGS (11)
  1. PREDNISONE [Concomitant]
     Route: 048
     Dates: start: 20050728
  2. IBU 600 [Concomitant]
     Route: 048
     Dates: start: 20031209
  3. HYDROCODONE BITARTRATE + ACETAMINOPHEN [Concomitant]
     Dosage: 5-500 - 10/500 MG
     Dates: start: 20040802
  4. LITHIUM [Concomitant]
     Dates: start: 20050101
  5. SEROQUEL [Suspect]
     Dosage: 50-700 MG
     Route: 048
     Dates: start: 20010616
  6. SEROQUEL [Suspect]
     Route: 048
     Dates: start: 20010116
  7. GEODON [Concomitant]
     Dates: start: 20050101
  8. ZYPREXA [Concomitant]
     Dates: start: 20030101, end: 20050101
  9. PHENOBARBITAL TAB [Concomitant]
     Dates: start: 20010116
  10. SEROQUEL [Suspect]
     Indication: BIPOLAR DISORDER
     Route: 048
     Dates: start: 20010101, end: 20061101
  11. DEPAKOTE [Concomitant]
     Dates: start: 20050101

REACTIONS (28)
  - FUNGAL INFECTION [None]
  - MIGRAINE [None]
  - ANXIETY [None]
  - DRUG ABUSE [None]
  - GROIN ABSCESS [None]
  - WEIGHT INCREASED [None]
  - CHOLELITHIASIS [None]
  - GALLBLADDER DISORDER [None]
  - BACK PAIN [None]
  - TOOTHACHE [None]
  - HEADACHE [None]
  - RECTAL HAEMORRHAGE [None]
  - ABDOMINAL PAIN [None]
  - CHOLECYSTITIS CHRONIC [None]
  - CONVULSION [None]
  - TYPE 2 DIABETES MELLITUS [None]
  - INJURY [None]
  - LIMB INJURY [None]
  - NECK PAIN [None]
  - SKELETAL INJURY [None]
  - LUNG DISORDER [None]
  - RIB FRACTURE [None]
  - ALCOHOL ABUSE [None]
  - PAIN IN EXTREMITY [None]
  - CHEST PAIN [None]
  - BLACK PIEDRA [None]
  - JOINT SPRAIN [None]
  - AXILLARY MASS [None]
